FAERS Safety Report 5131056-9 (Version None)
Quarter: 2006Q3

REPORT INFORMATION
  Report Type: 
  Country: None (occurrence: None)
  Receive Date: 20060829
  Receipt Date: 20060705
  Transmission Date: 20061208
  Serious: Yes (Other)
  Sender: FDA-Public Use
  Company Number: S06-USA-02523-01

PATIENT
  Age: 40 Year
  Sex: Male

DRUGS (7)
  1. CAMPRAL [Suspect]
     Indication: ALCOHOLISM
     Dosage: 3663 MG QD PO
     Route: 048
     Dates: start: 20060624
  2. CAMPRAL [Suspect]
     Indication: ALCOHOLISM
     Dosage: 666 MG TID PO
     Route: 048
     Dates: start: 20060531, end: 20060623
  3. TRAZODONE HCL [Concomitant]
  4. LIPITOR [Concomitant]
  5. BLOOD PRESSURE MEDICATION (NOS) [Concomitant]
  6. CENTRUM (MULTIVITAMIN [Concomitant]
  7. VITAMINS [Concomitant]

REACTIONS (3)
  - DEPRESSION [None]
  - INTENTIONAL OVERDOSE [None]
  - SUICIDAL IDEATION [None]
